FAERS Safety Report 5764056-6 (Version None)
Quarter: 2008Q2

REPORT INFORMATION
  Report Type: 
  Country: None (occurrence: None)
  Receive Date: 20080606
  Receipt Date: 20080606
  Transmission Date: 20081010
  Serious: No
  Sender: FDA-Public Use
  Company Number: None

PATIENT
  Age: 73 Year
  Sex: Male
  Weight: 88.4514 kg

DRUGS (2)
  1. DIGITEK 0.125 MG ACTAVIS TOTOWA LLC MYLAN [Suspect]
     Indication: ATRIAL FIBRILLATION
     Dosage: 1 1 - A DAY NIGHT
     Dates: start: 20080310
  2. DIGITEK 0.125 MG ACTAVIS TOTOWA LLC MYLAN [Suspect]
     Indication: CARDIAC FAILURE CONGESTIVE
     Dosage: 1 1 - A DAY NIGHT
     Dates: start: 20080310

REACTIONS (1)
  - HEART RATE DECREASED [None]
